FAERS Safety Report 9313411 (Version 1)
Quarter: 2013Q2

REPORT INFORMATION
  Report Type: Spontaneous
  Country: NL (occurrence: NL)
  Receive Date: 20130528
  Receipt Date: 20130528
  Transmission Date: 20140414
  Serious: Yes (Death, Other)
  Sender: FDA-Public Use
  Company Number: PHHY2013NL051664

PATIENT
  Age: 72 Year
  Sex: Male

DRUGS (4)
  1. RIFAMPICIN [Suspect]
     Indication: MYCOBACTERIAL INFECTION
  2. ETHAMBUTOL [Concomitant]
     Indication: MYCOBACTERIAL INFECTION
  3. CLARITHROMYCIN [Concomitant]
     Indication: MYCOBACTERIAL INFECTION
  4. CIPROFLOXACIN [Concomitant]
     Indication: MYCOBACTERIAL INFECTION

REACTIONS (3)
  - Multi-organ failure [Fatal]
  - Mycobacterial infection [Fatal]
  - Hepatotoxicity [Unknown]
